FAERS Safety Report 11948332 (Version 3)
Quarter: 2016Q2

REPORT INFORMATION
  Report Type: Spontaneous
  Country: US (occurrence: US)
  Receive Date: 20160125
  Receipt Date: 20160422
  Transmission Date: 20160815
  Serious: No
  Sender: FDA-Public Use
  Company Number: US-PFIZER INC-2016005459

PATIENT
  Age: 63 Year
  Sex: Female

DRUGS (23)
  1. NEURONTIN [Suspect]
     Active Substance: GABAPENTIN
     Indication: CERVICAL SPINAL STENOSIS
  2. CYMBALTA [Concomitant]
     Active Substance: DULOXETINE HYDROCHLORIDE
     Indication: SACROILIITIS
     Dosage: 60 MG, 1X/DAY, (QHS)
  3. NAPROSYN [Concomitant]
     Active Substance: NAPROXEN
     Indication: SACROILIITIS
     Dosage: 250 MG, 1X/DAY, (QHS)
  4. NEURONTIN [Suspect]
     Active Substance: GABAPENTIN
     Indication: NEUROPATHY PERIPHERAL
  5. SYNTHROID [Concomitant]
     Active Substance: LEVOTHYROXINE SODIUM
     Dosage: UNK
  6. NAPROSYN [Concomitant]
     Active Substance: NAPROXEN
     Indication: NECK PAIN
  7. ZANAFLEX [Concomitant]
     Active Substance: TIZANIDINE HYDROCHLORIDE
     Indication: SPINAL OSTEOARTHRITIS
  8. MULTIVITAMIN /00097801/ [Concomitant]
     Active Substance: VITAMINS
  9. BABY ASPIRIN [Concomitant]
     Active Substance: ASPIRIN
     Dosage: UNK
  10. CALCIUM [Concomitant]
     Active Substance: CALCIUM
     Dosage: UNK
  11. NEURONTIN [Suspect]
     Active Substance: GABAPENTIN
     Indication: NECK PAIN
  12. NEURONTIN [Suspect]
     Active Substance: GABAPENTIN
     Indication: SPINAL OSTEOARTHRITIS
  13. CYMBALTA [Concomitant]
     Active Substance: DULOXETINE HYDROCHLORIDE
     Indication: SPINAL OSTEOARTHRITIS
  14. ZANAFLEX [Concomitant]
     Active Substance: TIZANIDINE HYDROCHLORIDE
     Indication: SACROILIITIS
     Dosage: 4 MG, AS NEEDED (QD)
  15. NEURONTIN [Suspect]
     Active Substance: GABAPENTIN
     Indication: PAIN
     Dosage: 100 MG,  1 IN THE AM, 2 AT BEDTIME
     Route: 048
     Dates: start: 2015
  16. NEURONTIN [Suspect]
     Active Substance: GABAPENTIN
     Indication: INTERVERTEBRAL DISC PROTRUSION
  17. FISH OIL [Concomitant]
     Active Substance: FISH OIL
     Dosage: UNK
  18. ZANAFLEX [Concomitant]
     Active Substance: TIZANIDINE HYDROCHLORIDE
     Indication: NECK PAIN
  19. NEURONTIN [Suspect]
     Active Substance: GABAPENTIN
     Indication: OSTEOARTHRITIS
     Dosage: 100 MG, 1 IN AM AND 200 MG QHS
     Route: 048
     Dates: start: 201511
  20. VITAMIN D [Concomitant]
     Active Substance: CHOLECALCIFEROL
     Dosage: UNK
  21. NAPROSYN [Concomitant]
     Active Substance: NAPROXEN
     Indication: SPINAL OSTEOARTHRITIS
  22. NEURONTIN [Suspect]
     Active Substance: GABAPENTIN
     Indication: SACROILIITIS
  23. CYMBALTA [Concomitant]
     Active Substance: DULOXETINE HYDROCHLORIDE
     Indication: NECK PAIN

REACTIONS (2)
  - Somnolence [Recovered/Resolved]
  - Product use issue [Unknown]

NARRATIVE: CASE EVENT DATE: 2015
